APPROVED DRUG PRODUCT: CYTARABINE
Active Ingredient: CYTARABINE
Strength: 20MG/ML
Dosage Form/Route: INJECTABLE;INJECTION
Application: A208485 | Product #001 | TE Code: AP
Applicant: MEITHEAL PHARMACEUTICALS INC
Approved: Feb 28, 2022 | RLD: No | RS: No | Type: RX